FAERS Safety Report 19520621 (Version 7)
Quarter: 2022Q3

REPORT INFORMATION
  Report Type: Report from Study
  Country: CO (occurrence: CO)
  Receive Date: 20210712
  Receipt Date: 20220912
  Transmission Date: 20221027
  Serious: Yes (Hospitalization, Other)
  Sender: FDA-Public Use
  Company Number: CO-ABBVIE-21K-036-3948035-00

PATIENT
  Sex: Female
  Weight: 54 kg

DRUGS (8)
  1. HUMIRA [Suspect]
     Active Substance: ADALIMUMAB
     Indication: Crohn^s disease
     Route: 058
     Dates: start: 20130517
  2. HUMIRA [Suspect]
     Active Substance: ADALIMUMAB
     Indication: Crohn^s disease
     Route: 058
     Dates: end: 20210304
  3. HUMIRA [Suspect]
     Active Substance: ADALIMUMAB
     Route: 058
     Dates: start: 2021, end: 20220111
  4. HUMIRA [Suspect]
     Active Substance: ADALIMUMAB
     Route: 058
     Dates: start: 2022, end: 20220301
  5. HUMIRA [Suspect]
     Active Substance: ADALIMUMAB
     Route: 058
     Dates: start: 2022, end: 20220413
  6. HUMIRA [Suspect]
     Active Substance: ADALIMUMAB
     Route: 058
     Dates: start: 2022, end: 20220824
  7. GABAPENTIN [Suspect]
     Active Substance: GABAPENTIN
     Indication: Adverse event
     Route: 065
     Dates: start: 20220106, end: 20220111
  8. COVID-19 VACCINE [Concomitant]
     Indication: COVID-19 immunisation
     Route: 030

REACTIONS (31)
  - Nervous system disorder [Not Recovered/Not Resolved]
  - Intraductal papillary-mucinous carcinoma of pancreas [Not Recovered/Not Resolved]
  - Noninfective encephalitis [Recovering/Resolving]
  - Haematochezia [Recovering/Resolving]
  - Neuralgia [Recovering/Resolving]
  - Ankylosing spondylitis [Not Recovered/Not Resolved]
  - Neoplasm [Not Recovered/Not Resolved]
  - Musculoskeletal disorder [Recovering/Resolving]
  - Gastrointestinal disorder [Recovering/Resolving]
  - Walking aid user [Not Recovered/Not Resolved]
  - Bedridden [Unknown]
  - Malaise [Not Recovered/Not Resolved]
  - Synovial cyst [Not Recovered/Not Resolved]
  - Weight decreased [Recovered/Resolved]
  - Gastrointestinal disorder [Recovering/Resolving]
  - Lymphadenopathy [Unknown]
  - Neuritis [Recovering/Resolving]
  - Mental disorder [Recovering/Resolving]
  - Fibromyalgia [Unknown]
  - Depressed mood [Recovering/Resolving]
  - Arthropathy [Unknown]
  - Bone disorder [Unknown]
  - Herpes zoster [Recovered/Resolved]
  - Neuralgia [Recovering/Resolving]
  - Influenza [Recovered/Resolved]
  - Abdominal discomfort [Recovering/Resolving]
  - Pain [Not Recovered/Not Resolved]
  - Vomiting [Recovering/Resolving]
  - Rectal haemorrhage [Unknown]
  - Proctalgia [Unknown]
  - Blood pressure increased [Recovered/Resolved]

NARRATIVE: CASE EVENT DATE: 20210101
